FAERS Safety Report 25614237 (Version 7)
Quarter: 2025Q3

REPORT INFORMATION
  Report Type: Report from Study
  Country: EU (occurrence: EU)
  Receive Date: 20250728
  Receipt Date: 20250814
  Transmission Date: 20251021
  Serious: Yes (Hospitalization)
  Sender: ABBVIE
  Company Number: EU-ABBVIE-6389623

PATIENT
  Age: 75 Year
  Sex: Male
  Weight: 83 kg

DRUGS (2)
  1. CARBIDOPA\LEVODOPA [Suspect]
     Active Substance: CARBIDOPA\LEVODOPA
     Indication: Parkinson^s disease
     Route: 050
     Dates: start: 20210909
  2. CARBIDOPA\LEVODOPA [Suspect]
     Active Substance: CARBIDOPA\LEVODOPA
     Route: 050

REACTIONS (8)
  - Hip surgery [Unknown]
  - Disorientation [Recovered/Resolved]
  - Stoma site erythema [Recovered/Resolved]
  - Escherichia test positive [Unknown]
  - Urinary tract infection [Recovered/Resolved]
  - Device issue [Unknown]
  - Stoma site discharge [Recovered/Resolved]
  - Stoma site infection [Recovered/Resolved]

NARRATIVE: CASE EVENT DATE: 20250701
